FAERS Safety Report 6818123-6 (Version None)
Quarter: 2010Q3

REPORT INFORMATION
  Report Type: 
  Country: None (occurrence: None)
  Receive Date: 20100706
  Receipt Date: 20100701
  Transmission Date: 20110219
  Serious: Yes (Other)
  Sender: FDA-Public Use
  Company Number: CHPA2010US10927

PATIENT
  Age: 75 Year
  Sex: Female

DRUGS (1)
  1. SLOW FE BROWN (NCH) [Suspect]
     Indication: MINERAL SUPPLEMENTATION
     Dosage: 1 DF, QD
     Route: 048

REACTIONS (1)
  - RENAL FAILURE [None]
